FAERS Safety Report 13270649 (Version 2)
Quarter: 2017Q1

REPORT INFORMATION
  Report Type: Report from Study
  Country: AU (occurrence: AU)
  Receive Date: 20170224
  Receipt Date: 20170323
  Transmission Date: 20170428
  Serious: Yes (Other)
  Sender: FDA-Public Use
  Company Number: AU-BIOGEN-2016BI00271692

PATIENT
  Sex: Female

DRUGS (1)
  1. AVONEX [Suspect]
     Active Substance: INTERFERON BETA-1A
     Indication: MULTIPLE SCLEROSIS
     Route: 030
     Dates: end: 20160726

REACTIONS (4)
  - Large intestine polyp [Unknown]
  - Dizziness [Unknown]
  - Disease progression [Unknown]
  - Hepatitis C [Unknown]

NARRATIVE: CASE EVENT DATE: 2016
